FAERS Safety Report 5741959-X (Version None)
Quarter: 2008Q2

REPORT INFORMATION
  Report Type: 
  Country: None (occurrence: None)
  Receive Date: 20080514
  Receipt Date: 20080514
  Transmission Date: 20081010
  Serious: Yes (Life-Threatening)
  Sender: FDA-Public Use
  Company Number: None

PATIENT
  Age: 15 Year
  Sex: Female
  Weight: 71.6683 kg

DRUGS (2)
  1. ABILIFY [Suspect]
     Indication: LOSS OF CONSCIOUSNESS
     Dosage: 10 MF DAILY PO
     Route: 048
     Dates: start: 20080418, end: 20080508
  2. ABILIFY [Suspect]
     Indication: UNRESPONSIVE TO STIMULI
     Dosage: 10 MF DAILY PO
     Route: 048
     Dates: start: 20080418, end: 20080508

REACTIONS (3)
  - FALL [None]
  - LOSS OF CONSCIOUSNESS [None]
  - UNRESPONSIVE TO STIMULI [None]
